FAERS Safety Report 4791259-X (Version None)
Quarter: 2005Q4

REPORT INFORMATION
  Report Type: 
  Country: None (occurrence: None)
  Receive Date: 20051005
  Receipt Date: 20050927
  Transmission Date: 20060501
  Serious: Yes (Hospitalization)
  Sender: FDA-Public Use
  Company Number: GXKR2005DK01705

PATIENT
  Age: 80 Year
  Sex: Male

DRUGS (3)
  1. PENICILLIN G SODIUM [Suspect]
     Indication: WOUND INFECTION
     Dosage: 2M IU, QD,
  2. PHENOXYMETHYLPENICILLIN [Suspect]
     Indication: WOUND INFECTION
     Dosage: 1M IU, QD, ORAL
     Route: 048
  3. ERYTHROMYCIN [Concomitant]

REACTIONS (10)
  - BLISTER [None]
  - C-REACTIVE PROTEIN INCREASED [None]
  - DOCUMENTED HYPERSENSITIVITY TO ADMINISTERED DRUG [None]
  - EOSINOPHIL COUNT INCREASED [None]
  - PEMPHIGOID [None]
  - RASH [None]
  - RASH MACULO-PAPULAR [None]
  - RASH PRURITIC [None]
  - SKIN TEST POSITIVE [None]
  - WHITE BLOOD CELL COUNT INCREASED [None]
